FAERS Safety Report 9242175 (Version 1)
Quarter: 2013Q2

REPORT INFORMATION
  Report Type: Spontaneous
  Country: DK (occurrence: DK)
  Receive Date: 20130419
  Receipt Date: 20130419
  Transmission Date: 20140414
  Serious: Yes (Hospitalization, Disabling)
  Sender: FDA-Public Use
  Company Number: PHHY2013DK036678

PATIENT
  Age: 79 Year
  Sex: Male

DRUGS (2)
  1. HEXAGLUCON [Suspect]
     Indication: DIABETES MELLITUS
     Dosage: 2 DF, BID
     Route: 048
     Dates: start: 20030308
  2. VESICARE [Concomitant]
     Indication: URINARY INCONTINENCE
     Route: 048
     Dates: start: 20090307

REACTIONS (1)
  - Dropped head syndrome [Recovered/Resolved]
